FAERS Safety Report 20367970 (Version 3)
Quarter: 2022Q1

REPORT INFORMATION
  Report Type: Spontaneous
  Country: IT (occurrence: IT)
  Receive Date: 20220124
  Receipt Date: 20220211
  Transmission Date: 20220423
  Serious: Yes (Hospitalization, Other)
  Sender: FDA-Public Use
  Company Number: IT-ARISTO PHARMA-AMOX+CLAV202112141

PATIENT
  Age: 5 Year
  Sex: Female

DRUGS (2)
  1. AMOXICILLIN\CLAVULANIC ACID [Suspect]
     Active Substance: AMOXICILLIN\CLAVULANIC ACID
     Indication: Beta haemolytic streptococcal infection
     Dosage: UNK
     Route: 048
  2. IBUPROFEN [Concomitant]
     Active Substance: IBUPROFEN
     Indication: Product used for unknown indication
     Dosage: UNK
     Route: 065

REACTIONS (9)
  - Angioedema [Recovered/Resolved]
  - Hypersensitivity [Recovered/Resolved]
  - Rash maculo-papular [Recovered/Resolved]
  - Urticaria [Unknown]
  - Drug hypersensitivity [Unknown]
  - Vasculitis [Unknown]
  - Pain in extremity [Unknown]
  - Gait disturbance [Unknown]
  - Arthralgia [Unknown]
